FAERS Safety Report 9192409 (Version 2)
Quarter: 2013Q2

REPORT INFORMATION
  Report Type: Spontaneous
  Country: US (occurrence: US)
  Receive Date: 20130327
  Receipt Date: 20130619
  Transmission Date: 20140414
  Serious: Yes (Other)
  Sender: FDA-Public Use
  Company Number: US-ELI_LILLY_AND_COMPANY-US201303006782

PATIENT
  Age: 72 Year
  Sex: Female
  Weight: 71.2 kg

DRUGS (1)
  1. HUMALOG LISPRO [Suspect]
     Indication: TYPE 2 DIABETES MELLITUS

REACTIONS (2)
  - Diabetic coma [Recovered/Resolved]
  - Incorrect dose administered [Unknown]
